FAERS Safety Report 5518853-2 (Version None)
Quarter: 2007Q4

REPORT INFORMATION
  Report Type: 
  Country: None (occurrence: None)
  Receive Date: 20071113
  Receipt Date: 20071030
  Transmission Date: 20080405
  Serious: Yes (Hospitalization)
  Sender: FDA-Public Use
  Company Number: 07-002129

PATIENT
  Sex: Male

DRUGS (1)
  1. TACLONEX [Suspect]
     Indication: PSORIASIS
     Dosage: 0.005/0.064%, TOPICAL
     Route: 061

REACTIONS (1)
  - GUTTATE PSORIASIS [None]
